FAERS Safety Report 19202174 (Version 1)
Quarter: 2021Q2

REPORT INFORMATION
  Report Type: Report from Study
  Country: EG (occurrence: EG)
  Receive Date: 20210430
  Receipt Date: 20210430
  Transmission Date: 20210717
  Serious: Yes (Other)
  Sender: FDA-Public Use
  Company Number: NVSC2021EG088545

PATIENT
  Age: 34 Year
  Sex: Female

DRUGS (1)
  1. GLIVEC [Suspect]
     Active Substance: IMATINIB MESYLATE
     Indication: CHRONIC MYELOID LEUKAEMIA
     Dosage: 1 DF, QD (5 YEARS AGO)
     Route: 065
     Dates: end: 2019

REACTIONS (8)
  - Papule [Not Recovered/Not Resolved]
  - Polymerase chain reaction positive [Recovered/Resolved]
  - Abdominal pain upper [Recovered/Resolved]
  - Postpartum haemorrhage [Recovered/Resolved]
  - Product dose omission issue [Not Recovered/Not Resolved]
  - Polymerase chain reaction positive [Not Recovered/Not Resolved]
  - White blood cell count increased [Not Recovered/Not Resolved]
  - Vomiting [Recovered/Resolved]

NARRATIVE: CASE EVENT DATE: 2016
